FAERS Safety Report 7776337-5 (Version None)
Quarter: 2011Q3

REPORT INFORMATION
  Report Type: 
  Country: None (occurrence: None)
  Receive Date: 20110926
  Receipt Date: 20110916
  Transmission Date: 20111222
  Serious: Yes (Other)
  Sender: FDA-Public Use
  Company Number: US-RB-028264-11

PATIENT
  Age: 15 Year
  Sex: Female

DRUGS (1)
  1. MUCINEX [Suspect]

REACTIONS (4)
  - DRUG ABUSE [None]
  - CHILLS [None]
  - PANIC ATTACK [None]
  - PALPITATIONS [None]
